FAERS Safety Report 8908373 (Version 1)
Quarter: 2012Q4

REPORT INFORMATION
  Report Type: 
  Country: US (occurrence: US)
  Receive Date: 20121114
  Receipt Date: 20121114
  Transmission Date: 20130627
  Serious: Yes (Hospitalization)
  Sender: FDA-Public Use
  Company Number: US-B.I. PHARMACEUTICALS,INC./RIDGEFIELD-2012-BP-27533BP

PATIENT
  Age: 73 Year
  Sex: Female
  Weight: 54 kg

DRUGS (7)
  1. PRADAXA [Suspect]
     Indication: ATRIAL FIBRILLATION
     Dosage: 300 mg
     Route: 048
     Dates: start: 2011
  2. SPIRONOLACTONE [Concomitant]
     Indication: ATRIAL FIBRILLATION
     Dosage: 25 mg
     Route: 048
  3. AMIODARONE [Concomitant]
     Indication: ATRIAL FIBRILLATION
     Dosage: 200 mg
     Route: 048
  4. GABAPENTIN [Concomitant]
     Indication: NEUROPATHY PERIPHERAL
     Dosage: 900 mg
     Route: 048
  5. FUROSEMIDE [Concomitant]
     Dosage: 20 mg
     Route: 048
  6. METOPROLOL [Concomitant]
     Indication: HYPERTENSION
     Dosage: 25 mg
     Route: 048
  7. ATORVASTATIN [Concomitant]
     Indication: ARTERIAL OCCLUSIVE DISEASE
     Dosage: 20 mg
     Route: 048

REACTIONS (2)
  - Pubis fracture [Recovered/Resolved]
  - Fall [Recovered/Resolved]
